FAERS Safety Report 19090580 (Version 1)
Quarter: 2021Q2

REPORT INFORMATION
  Report Type: Spontaneous
  Country: US (occurrence: US)
  Receive Date: 20210405
  Receipt Date: 20210405
  Transmission Date: 20210717
  Serious: No
  Sender: FDA-Public Use
  Company Number: US-TELIGENT, INC-20210100003

PATIENT
  Sex: Female

DRUGS (2)
  1. LIDOCAINE AND PRILOCAINE [Suspect]
     Active Substance: LIDOCAINE\PRILOCAINE
     Indication: BREAST PAIN
     Dosage: ONCE DAILY UP TO 1 GM A DAY
     Route: 061
     Dates: start: 20210106
  2. LIDOCAINE AND PRILOCAINE [Suspect]
     Active Substance: LIDOCAINE\PRILOCAINE
     Indication: LOCAL ANAESTHESIA

REACTIONS (1)
  - Drug ineffective [Unknown]
